FAERS Safety Report 8002835 (Version 2)
Quarter: 2013Q3

REPORT INFORMATION
  Report Type: Report from Study
  Country: FR (occurrence: FR)
  Receive Date: 20110622
  Receipt Date: 20130806
  Transmission Date: 20140515
  Serious: Yes (Hospitalization)
  Sender: FDA-Public Use
  Company Number: PHHO2011FR10312

PATIENT
  Age: 70 Year
  Sex: Male
  Weight: 56 kg

DRUGS (19)
  1. RAD 666 / RAD 001A [Suspect]
     Indication: RENAL TRANSPLANT
     Dosage: 3 MG, QD
     Route: 002
     Dates: start: 20101129
  2. CELLCEPT [Suspect]
     Indication: RENAL TRANSPLANT
     Dosage: 500 MG, QD
     Route: 002
     Dates: start: 20101124
  3. CORTANCYL [Concomitant]
     Indication: RENAL TRANSPLANT
     Dosage: 10 MG, DAILY
     Route: 002
     Dates: start: 20101201
  4. BACTRIM [Concomitant]
     Dosage: 400 MG, UNK
     Dates: start: 20101127
  5. OMEPRAZOLE [Concomitant]
     Dosage: 20 MG, UNK
     Dates: start: 20101126
  6. IRON [Concomitant]
  7. PLAQUENIL [Concomitant]
     Dosage: 200 MG, UNK
     Dates: start: 20101217
  8. DETENSIEL [Concomitant]
     Dosage: 10 MG, UNK
     Dates: start: 20101129
  9. OMIX [Concomitant]
     Dosage: 0.4 MG, UNK
     Dates: start: 20101130
  10. AMLOR [Concomitant]
     Dosage: 10 MG, UNK
     Dates: start: 20101128
  11. LASILIX [Concomitant]
     Dosage: UNK
     Dates: start: 20110112
  12. ROVALCYTE [Concomitant]
     Dosage: 450 MG, UNK
     Dates: start: 20101129
  13. FERROUS SULFATE [Concomitant]
     Dosage: 100 MG, UNK
     Dates: start: 20101129
  14. FLUINDIONE [Concomitant]
     Dosage: 15 MG, UNK
     Dates: start: 20110405
  15. CALCIPARIN [Concomitant]
     Dosage: 0.2 ML, BID
  16. ASCORBIC ACID [Concomitant]
     Dosage: UNK
  17. MUCOPROTEOSE [Concomitant]
     Dosage: UNK
  18. PENTOXIFYLLINE [Concomitant]
  19. FUROSEMIDE [Concomitant]
     Dosage: UNK

REACTIONS (2)
  - Pancytopenia [Recovered/Resolved]
  - Anaemia [Recovered/Resolved]
